FAERS Safety Report 21386499 (Version 1)
Quarter: 2022Q3

REPORT INFORMATION
  Report Type: Spontaneous
  Country: US (occurrence: US)
  Receive Date: 20220928
  Receipt Date: 20220928
  Transmission Date: 20221027
  Serious: Yes (Other)
  Sender: FDA-Public Use
  Company Number: US-NOVARTISPH-NVSC2022US215833

PATIENT
  Age: 53 Year
  Sex: Male

DRUGS (7)
  1. CARBOPLATIN [Suspect]
     Active Substance: CARBOPLATIN
     Indication: Lung adenocarcinoma
     Dosage: 5 CYCLES (3 WEEKS/CYCLE)
     Route: 065
  2. DOCETAXEL [Suspect]
     Active Substance: DOCETAXEL
     Indication: Lung adenocarcinoma
     Dosage: 6 CYCLES (3 WEEKS/CYCLE)
     Route: 065
  3. PEMETREXED [Suspect]
     Active Substance: PEMETREXED
     Indication: Lung adenocarcinoma
     Dosage: 5 CYCLES (3 WEEKS/CYCLE)
     Route: 065
  4. PEMBROLIZUMAB [Suspect]
     Active Substance: PEMBROLIZUMAB
     Indication: Lung adenocarcinoma
     Dosage: 5 CYCLES (3 WEEKS/CYCLE)
     Route: 065
  5. RAMUCIRUMAB [Suspect]
     Active Substance: RAMUCIRUMAB
     Indication: Lung adenocarcinoma
     Dosage: 5 CYCLES (3 WEEKS/CYCLE)
     Route: 065
  6. VINORELBINE [Suspect]
     Active Substance: VINORELBINE TARTRATE
     Indication: Lung adenocarcinoma
     Dosage: 2 CYCLES (3 WEEKS/CYCLE)
     Route: 065
  7. GEMCITABINE [Suspect]
     Active Substance: GEMCITABINE
     Indication: Lung adenocarcinoma
     Dosage: 2 CYCLES (3 WEEKS/CYCLE)
     Route: 065

REACTIONS (3)
  - Lung adenocarcinoma [Unknown]
  - Malignant neoplasm progression [Unknown]
  - Product use in unapproved indication [Unknown]
